FAERS Safety Report 6354932-8 (Version None)
Quarter: 2009Q3

REPORT INFORMATION
  Report Type: 
  Country: None (occurrence: None)
  Receive Date: 20090914
  Receipt Date: 20090904
  Transmission Date: 20100115
  Serious: Yes (Disabling)
  Sender: FDA-Public Use
  Company Number: CA-AVENTIS-200920048GDDC

PATIENT
  Sex: Male

DRUGS (2)
  1. LANTUS [Suspect]
     Dosage: DOSE: UNK
     Route: 058
     Dates: start: 20090601
  2. HUMALOG [Concomitant]
     Dosage: DOSE: UNK
     Route: 058

REACTIONS (2)
  - HYPOGLYCAEMIA [None]
  - VERTIGO [None]
